FAERS Safety Report 11859196 (Version 1)
Quarter: 2015Q4

REPORT INFORMATION
  Report Type: Spontaneous
  Country: FR (occurrence: FR)
  Receive Date: 20151222
  Receipt Date: 20151222
  Transmission Date: 20160305
  Serious: Yes (Other)
  Sender: FDA-Public Use
  Company Number: FR-CELGENE-FRA-2015122097

PATIENT

DRUGS (2)
  1. THALIDOMIDE CELGENE [Suspect]
     Active Substance: THALIDOMIDE
     Indication: CROHN^S DISEASE
     Dosage: 50 OR 100
     Route: 048
  2. THALIDOMIDE CELGENE [Suspect]
     Active Substance: THALIDOMIDE
     Indication: OFF LABEL USE

REACTIONS (17)
  - Rash [Unknown]
  - Neuropathy peripheral [Unknown]
  - Dizziness [Unknown]
  - Amaurosis fugax [Unknown]
  - Electromyogram abnormal [Unknown]
  - Xerosis [Unknown]
  - Somnolence [Unknown]
  - Treatment failure [Unknown]
  - Hepatitis acute [Unknown]
  - Myocardial infarction [Unknown]
  - Leukopenia [Unknown]
  - Erythema [Unknown]
  - Sinoatrial block [Unknown]
  - Peripheral sensory neuropathy [Unknown]
  - Crohn^s disease [Unknown]
  - Myelitis [Unknown]
  - Headache [Unknown]
